FAERS Safety Report 7774624-8 (Version None)
Quarter: 2011Q3

REPORT INFORMATION
  Report Type: 
  Country: None (occurrence: None)
  Receive Date: 20110923
  Receipt Date: 20110914
  Transmission Date: 20111222
  Serious: Yes (Hospitalization)
  Sender: FDA-Public Use
  Company Number: JP-SANOFI-AVENTIS-2010SA056658

PATIENT
  Age: 48 Year
  Sex: Female
  Weight: 52 kg

DRUGS (6)
  1. LASIX [Suspect]
     Route: 048
  2. MAGNESIUM OXIDE [Concomitant]
  3. EURODIN [Concomitant]
  4. SLOW-K [Concomitant]
  5. AZOSEMIDE [Suspect]
     Route: 065
  6. CALCIUM LACTATE [Concomitant]

REACTIONS (7)
  - HYPOCALCAEMIA [None]
  - MALAISE [None]
  - HYPOAESTHESIA [None]
  - HYPOKALAEMIA [None]
  - HYPOMAGNESAEMIA [None]
  - PSEUDO-BARTTER SYNDROME [None]
  - MUSCULOSKELETAL STIFFNESS [None]
